FAERS Safety Report 6571859-7 (Version None)
Quarter: 2010Q1

REPORT INFORMATION
  Report Type: 
  Country: None (occurrence: None)
  Receive Date: 20100205
  Receipt Date: 20100127
  Transmission Date: 20100710
  Serious: Yes (Hospitalization)
  Sender: FDA-Public Use
  Company Number: GB-AMGEN-KDC388982

PATIENT
  Sex: Male

DRUGS (6)
  1. VECTIBIX [Suspect]
     Indication: GASTROOESOPHAGEAL CANCER
     Dates: start: 20091103
  2. EPIRUBICIN [Concomitant]
     Dates: start: 20091103
  3. OXALIPLATIN [Concomitant]
     Dates: start: 20091103
  4. CAPECITABINE [Concomitant]
     Dates: start: 20091103
  5. BISOPROLOL [Concomitant]
     Dates: start: 20091112
  6. ASPIRIN [Concomitant]
     Dates: start: 20091112

REACTIONS (1)
  - INFECTION [None]
